FAERS Safety Report 26068980 (Version 1)
Quarter: 2025Q4

REPORT INFORMATION
  Report Type: Spontaneous
  Country: US (occurrence: US)
  Receive Date: 20251120
  Receipt Date: 20251120
  Transmission Date: 20260118
  Serious: No
  Sender: TAKEDA
  Company Number: US-TAKEDA-2025TUS101851

PATIENT
  Sex: Female

DRUGS (3)
  1. TRINTELLIX [Suspect]
     Active Substance: VORTIOXETINE HYDROBROMIDE
     Indication: Depression
     Dosage: 5 MILLIGRAM, QD
  2. LITHIUM [Concomitant]
     Active Substance: LITHIUM
     Dosage: UNK
  3. VRAYLAR [Concomitant]
     Active Substance: CARIPRAZINE
     Dosage: UNK

REACTIONS (4)
  - Blood pressure decreased [Unknown]
  - Fall [Unknown]
  - Ocular discomfort [Unknown]
  - Dizziness [Unknown]
